FAERS Safety Report 6853080-8 (Version None)
Quarter: 2010Q3

REPORT INFORMATION
  Report Type: 
  Country: None (occurrence: None)
  Receive Date: 20100717
  Receipt Date: 20071206
  Transmission Date: 20110219
  Serious: No
  Sender: FDA-Public Use
  Company Number: US-PFIZER INC-2007101613

PATIENT
  Sex: Male
  Weight: 79.545 kg

DRUGS (5)
  1. CHANTIX [Suspect]
     Indication: SMOKING CESSATION THERAPY
     Dates: start: 20071113
  2. FOLIC ACID [Concomitant]
  3. ALTACE [Concomitant]
  4. DILTIAZEM HYDROCHLORIDE [Concomitant]
  5. ACETYLSALICYLIC ACID [Concomitant]

REACTIONS (4)
  - DECREASED APPETITE [None]
  - MEDICATION ERROR [None]
  - MOOD SWINGS [None]
  - SOMNOLENCE [None]
